FAERS Safety Report 9846051 (Version 1)
Quarter: 2014Q1

REPORT INFORMATION
  Report Type: Spontaneous
  Country: ES (occurrence: ES)
  Receive Date: 20140127
  Receipt Date: 20140127
  Transmission Date: 20141002
  Serious: Yes (Death, Hospitalization)
  Sender: FDA-Public Use
  Company Number: PHHY2014ES004946

PATIENT
  Age: 63 Year
  Sex: Male

DRUGS (7)
  1. CICLOSPORIN [Suspect]
     Indication: LIVER TRANSPLANT
     Dosage: 50 MG/12H
  2. CICLOSPORIN [Suspect]
     Dosage: 25 MG/DAY
  3. PREDNISONE [Suspect]
     Dosage: 5 MG, PER DAY
  4. PREDNISONE [Suspect]
     Dosage: 10 MG, PER DAY
  5. AZATHIOPRINE [Suspect]
     Dosage: 75 MG, PER DAY
  6. RIBAVIRIN [Suspect]
     Dosage: 800 MG, PER DAY
  7. RIBAVIRIN [Suspect]
     Dosage: 600 MG, PER DAY

REACTIONS (11)
  - Renal failure acute [Fatal]
  - Lung infection [Fatal]
  - Renal impairment [Fatal]
  - Hypercholesterolaemia [Unknown]
  - Hypertriglyceridaemia [Unknown]
  - Serum ferritin increased [Unknown]
  - Pancytopenia [Unknown]
  - Liver function test abnormal [Unknown]
  - Normochromic normocytic anaemia [Unknown]
  - Hepatitis [Unknown]
  - Drug ineffective [Unknown]
